FAERS Safety Report 9967303 (Version 2)
Quarter: 2014Q1

REPORT INFORMATION
  Report Type: Spontaneous
  Country: US (occurrence: US)
  Receive Date: 20140305
  Receipt Date: 20140305
  Transmission Date: 20141002
  Serious: Yes (Hospitalization, Other)
  Sender: FDA-Public Use
  Company Number: US-ABBVIE-13P-163-1115690-00

PATIENT
  Age: 22 Year
  Sex: Male
  Weight: 62.65 kg

DRUGS (12)
  1. HUMIRA [Suspect]
     Indication: CROHN^S DISEASE
     Dates: start: 20130701, end: 20130701
  2. ALLEGRA D [Concomitant]
     Indication: PRODUCT USED FOR UNKNOWN INDICATION
  3. CENTRUM [Concomitant]
     Indication: PRODUCT USED FOR UNKNOWN INDICATION
  4. FOLIC ACID [Concomitant]
     Indication: PRODUCT USED FOR UNKNOWN INDICATION
     Dosage: DAILY
  5. IRON [Concomitant]
     Indication: PRODUCT USED FOR UNKNOWN INDICATION
     Dosage: EVERY OTHER DAY
  6. MULTIVITAMIN [Concomitant]
     Indication: PRODUCT USED FOR UNKNOWN INDICATION
  7. 6-MP [Concomitant]
     Indication: CROHN^S DISEASE
     Route: 048
     Dates: start: 2011, end: 2012
  8. 6-MP [Concomitant]
     Route: 048
     Dates: start: 2012, end: 201305
  9. 6-MP [Concomitant]
     Route: 048
     Dates: start: 201305
  10. IMITREX [Concomitant]
     Indication: PRODUCT USED FOR UNKNOWN INDICATION
  11. PREDNISONE [Concomitant]
     Indication: CROHN^S DISEASE
     Dosage: FINISHED A LONT TAPER JUST BEFORE STARTING HUMIRA
  12. PREDNISONE [Concomitant]
     Dosage: TAPER FROM 40 MG DFIALY TO OFF
     Dates: start: 2013, end: 201305

REACTIONS (6)
  - Pneumonia [Recovered/Resolved]
  - Pain [Recovered/Resolved with Sequelae]
  - Pyrexia [Recovered/Resolved]
  - Oropharyngeal pain [Unknown]
  - Tinea pedis [Unknown]
  - Headache [Not Recovered/Not Resolved]
